FAERS Safety Report 22350452 (Version 1)
Quarter: 2023Q2

REPORT INFORMATION
  Report Type: Spontaneous
  Country: US (occurrence: None)
  Receive Date: 20230520
  Receipt Date: 20230520
  Transmission Date: 20230722
  Serious: No
  Sender: FDA-Public Use
  Company Number: None

PATIENT
  Age: 68 Year
  Sex: Male
  Weight: 101.25 kg

DRUGS (10)
  1. OZEMPIC [Suspect]
     Active Substance: SEMAGLUTIDE
     Indication: Diabetes mellitus
     Dosage: FREQUENCY : WEEKLY;?
     Route: 058
     Dates: start: 20230411, end: 20230514
  2. ALISKIREN [Concomitant]
     Active Substance: ALISKIREN
  3. Praleunt [Concomitant]
  4. POTASSIUM [Concomitant]
     Active Substance: POTASSIUM
  5. FUROSEMIDE [Concomitant]
     Active Substance: FUROSEMIDE
  6. TESTOSTERONE GEL 1.62% [Concomitant]
     Active Substance: TESTOSTERONE
  7. CLONIDINE [Concomitant]
     Active Substance: CLONIDINE
  8. PRILOSEC [Concomitant]
     Active Substance: OMEPRAZOLE MAGNESIUM
  9. ASPIRIN [Concomitant]
     Active Substance: ASPIRIN
  10. DEVICE [Concomitant]
     Active Substance: DEVICE

REACTIONS (9)
  - Joint stiffness [None]
  - Headache [None]
  - Nausea [None]
  - Fatigue [None]
  - Muscle spasms [None]
  - Back pain [None]
  - Neck pain [None]
  - Muscle spasms [None]
  - Chest discomfort [None]

NARRATIVE: CASE EVENT DATE: 20230515
